FAERS Safety Report 21901741 (Version 6)
Quarter: 2023Q2

REPORT INFORMATION
  Report Type: Report from Study
  Country: CA (occurrence: CA)
  Receive Date: 20230124
  Receipt Date: 20230515
  Transmission Date: 20230721
  Serious: Yes (Other)
  Sender: FDA-Public Use
  Company Number: CA-GILEAD-2022-0610425

PATIENT
  Age: 38 Year
  Sex: Female

DRUGS (8)
  1. SACITUZUMAB GOVITECAN-HZIY [Suspect]
     Active Substance: SACITUZUMAB GOVITECAN-HZIY
     Indication: Triple negative breast cancer
     Dosage: 780 MG D1/D8
     Route: 042
     Dates: start: 20221212, end: 20221227
  2. SACITUZUMAB GOVITECAN-HZIY [Suspect]
     Active Substance: SACITUZUMAB GOVITECAN-HZIY
     Dosage: 520 MG
     Route: 042
  3. SACITUZUMAB GOVITECAN-HZIY [Suspect]
     Active Substance: SACITUZUMAB GOVITECAN-HZIY
     Dosage: 510 MG
     Route: 042
  4. SACITUZUMAB GOVITECAN-HZIY [Suspect]
     Active Substance: SACITUZUMAB GOVITECAN-HZIY
     Dosage: 500 MG
     Route: 042
     Dates: start: 20221212
  5. SACITUZUMAB GOVITECAN-HZIY [Suspect]
     Active Substance: SACITUZUMAB GOVITECAN-HZIY
     Dosage: UNK
     Route: 042
     Dates: start: 20230404
  6. PACLITAXEL [Concomitant]
     Active Substance: PACLITAXEL
  7. GEMCITABINE [Concomitant]
     Active Substance: GEMCITABINE
  8. CAPECITABINE [Concomitant]
     Active Substance: CAPECITABINE

REACTIONS (10)
  - Seizure [Unknown]
  - Disease progression [Not Recovered/Not Resolved]
  - Neutropenia [Unknown]
  - Inappropriate schedule of product administration [Unknown]
  - Weight fluctuation [Unknown]
  - Therapy change [Not Recovered/Not Resolved]
  - Weight increased [Unknown]
  - Asthenia [Recovering/Resolving]
  - Pain [Unknown]
  - Urinary tract infection [Unknown]

NARRATIVE: CASE EVENT DATE: 20230105
